FAERS Safety Report 13271298 (Version 3)
Quarter: 2017Q1

REPORT INFORMATION
  Report Type: Report from Study
  Country: US (occurrence: US)
  Receive Date: 20170226
  Receipt Date: 20170329
  Transmission Date: 20170428
  Serious: No
  Sender: FDA-Public Use
  Company Number: US-AMGEN-USASL2017028427

PATIENT
  Age: 72 Year
  Sex: Female

DRUGS (1)
  1. ENBREL [Suspect]
     Active Substance: ETANERCEPT
     Indication: RHEUMATOID ARTHRITIS
     Dosage: 50 MG, QWK
     Route: 065
     Dates: start: 201701

REACTIONS (13)
  - Peripheral coldness [Unknown]
  - Therapeutic response decreased [Unknown]
  - Hypoaesthesia [Unknown]
  - Back pain [Not Recovered/Not Resolved]
  - Peripheral swelling [Unknown]
  - Limb discomfort [Unknown]
  - Pain in extremity [Unknown]
  - Joint swelling [Unknown]
  - Grip strength decreased [Unknown]
  - Injection site pain [Unknown]
  - Injection site erythema [Unknown]
  - Vision blurred [Unknown]
  - Fear of injection [Unknown]

NARRATIVE: CASE EVENT DATE: 201701
